FAERS Safety Report 6820052-9 (Version None)
Quarter: 2010Q3

REPORT INFORMATION
  Report Type: 
  Country: None (occurrence: None)
  Receive Date: 20100707
  Receipt Date: 20100701
  Transmission Date: 20110219
  Serious: Yes (Other)
  Sender: FDA-Public Use
  Company Number: A0868182A

PATIENT
  Age: 80 Year
  Sex: Female

DRUGS (7)
  1. ADVAIR DISKUS 100/50 [Suspect]
     Indication: CHRONIC OBSTRUCTIVE PULMONARY DISEASE
     Dosage: 1PUFF TWICE PER DAY
     Route: 055
     Dates: start: 20070317
  2. SPIRIVA [Concomitant]
  3. DIGOXIN [Concomitant]
  4. LOPRESSOR [Concomitant]
  5. ASPIRIN [Concomitant]
  6. LASIX [Concomitant]
  7. ADVAIR DISKUS 100/50 [Concomitant]
     Route: 055

REACTIONS (7)
  - APHAGIA [None]
  - BURNING SENSATION [None]
  - DYSPHONIA [None]
  - GLOSSODYNIA [None]
  - ORAL DISCOMFORT [None]
  - OSTEOPOROSIS [None]
  - STOMATITIS [None]
